FAERS Safety Report 15246523 (Version 2)
Quarter: 2018Q3

REPORT INFORMATION
  Report Type: Spontaneous
  Country: US (occurrence: US)
  Receive Date: 20180806
  Receipt Date: 20180920
  Transmission Date: 20181010
  Serious: Yes (Death, Hospitalization)
  Sender: FDA-Public Use
  Company Number: US-ACTELION-A-NJ2018-176289

PATIENT
  Age: 58 Year
  Sex: Female
  Weight: 112.47 kg

DRUGS (14)
  1. UPTRAVI [Suspect]
     Active Substance: SELEXIPAG
     Indication: PULMONARY ARTERIAL HYPERTENSION
     Dosage: UNK
     Route: 048
     Dates: start: 20170204
  2. HYDROCHLOROTHIAZIDE. [Concomitant]
     Active Substance: HYDROCHLOROTHIAZIDE
  3. POTASSIUM CHLORIDE. [Concomitant]
     Active Substance: POTASSIUM CHLORIDE
     Dosage: UNK
     Dates: start: 2017
  4. VELETRI [Suspect]
     Active Substance: EPOPROSTENOL
     Indication: PULMONARY ARTERIAL HYPERTENSION
     Route: 042
  5. SILDENAFIL. [Concomitant]
     Active Substance: SILDENAFIL
     Dosage: UNK
     Dates: start: 20150414
  6. ALBUTEROL. [Concomitant]
     Active Substance: ALBUTEROL
     Dosage: UNK
     Dates: start: 2017
  7. FLUTICASONE PROPIONATE W/SALMETEROL [Concomitant]
     Active Substance: FLUTICASONE PROPIONATE\SALMETEROL XINAFOATE
  8. LOPERAMIDE [Concomitant]
     Active Substance: LOPERAMIDE
  9. UPTRAVI [Suspect]
     Active Substance: SELEXIPAG
     Dosage: 100 MCG AM 12 MCG, BID
     Route: 048
     Dates: start: 20180224, end: 20180709
  10. MONTELUKAST [Concomitant]
     Active Substance: MONTELUKAST SODIUM
  11. PREDNISONE. [Concomitant]
     Active Substance: PREDNISONE
     Dosage: UNK
     Dates: start: 2017
  12. OXYGEN. [Concomitant]
     Active Substance: OXYGEN
     Dosage: UNK
     Dates: start: 20171221
  13. SITAGLIPTIN METFORMIN [Concomitant]
     Active Substance: METFORMIN HYDROCHLORIDE\SITAGLIPTIN PHOSPHATE
  14. AMOXICILLIN. [Concomitant]
     Active Substance: AMOXICILLIN
     Dosage: UNK
     Dates: start: 20171221

REACTIONS (13)
  - Oxygen saturation decreased [Unknown]
  - Fatigue [Unknown]
  - Pulmonary arterial hypertension [Fatal]
  - General physical health deterioration [Unknown]
  - Pneumonia [Unknown]
  - Aspiration [Unknown]
  - Dyspnoea [Unknown]
  - Pleural effusion [Unknown]
  - Atelectasis [Unknown]
  - Hypoxia [Unknown]
  - Condition aggravated [Unknown]
  - Fluid overload [Unknown]
  - Right ventricular failure [Fatal]

NARRATIVE: CASE EVENT DATE: 2015
